FAERS Safety Report 7878846-7 (Version None)
Quarter: 2011Q4

REPORT INFORMATION
  Report Type: 
  Country: None (occurrence: None)
  Receive Date: 20111101
  Receipt Date: 20111024
  Transmission Date: 20120403
  Serious: Yes (Other)
  Sender: FDA-Public Use
  Company Number: BR-MEDIMMUNE-MEDI-0013779

PATIENT
  Age: 6 Month
  Sex: Male
  Weight: 5.31 kg

DRUGS (1)
  1. SYNAGIS [Suspect]
     Route: 030
     Dates: start: 20110701, end: 20110801

REACTIONS (7)
  - ATRIOVENTRICULAR SEPTAL DEFECT [None]
  - FATIGUE [None]
  - NASOPHARYNGITIS [None]
  - DYSPNOEA [None]
  - PNEUMONIA [None]
  - CRYING [None]
  - PARANASAL SINUS HYPERSECRETION [None]
